FAERS Safety Report 6308032-3 (Version None)
Quarter: 2009Q3

REPORT INFORMATION
  Report Type: 
  Country: None (occurrence: None)
  Receive Date: 20090813
  Receipt Date: 20090805
  Transmission Date: 20100115
  Serious: Yes (Hospitalization)
  Sender: FDA-Public Use
  Company Number: A0801494A

PATIENT
  Age: 15 Year
  Sex: Male
  Weight: 51.4 kg

DRUGS (7)
  1. LAMICTAL [Suspect]
     Route: 048
  2. DEPAKOTE ER [Suspect]
     Dosage: 250MG TWICE PER DAY
     Route: 048
     Dates: start: 19930101, end: 20060101
  3. LEVETIRACETAM [Suspect]
     Dates: start: 20060101, end: 20070101
  4. TOPIRAMATE [Concomitant]
  5. CYANOCOBALAMIN [Concomitant]
     Indication: VITAMIN SUPPLEMENTATION
  6. ERGOCALCIFEROL [Concomitant]
     Indication: VITAMIN SUPPLEMENTATION
  7. OMEGA 3 FATTY ACIDS [Concomitant]

REACTIONS (10)
  - ATROPHY [None]
  - COGNITIVE DISORDER [None]
  - CONVULSION [None]
  - GAIT DISTURBANCE [None]
  - HEMIPARESIS [None]
  - MEMORY IMPAIRMENT [None]
  - POSTICTAL PARALYSIS [None]
  - SOMNOLENCE [None]
  - SPEECH DISORDER [None]
  - WEIGHT DECREASED [None]
